FAERS Safety Report 5937584-8 (Version None)
Quarter: 2008Q4

REPORT INFORMATION
  Report Type: 
  Country: None (occurrence: None)
  Receive Date: 20081029
  Receipt Date: 20081015
  Transmission Date: 20090506
  Serious: Yes (Other)
  Sender: FDA-Public Use
  Company Number: 220007M08GBR

PATIENT
  Age: 20 Year
  Sex: Male

DRUGS (4)
  1. SOMATROPIN (SOMATROPIN) [Suspect]
     Indication: GROWTH HORMONE DEFICIENCY
     Dosage: 0.3 MG, 1 IN 1 DAYS
     Dates: start: 20070101
  2. DESMOPRESSIN ACETATE [Concomitant]
  3. HYDROCORTISONE /00028601/ [Concomitant]
  4. LEVOTHYROXINE SODIUM [Concomitant]

REACTIONS (1)
  - HYPERNATRAEMIA [None]
